FAERS Safety Report 6836705-2 (Version None)
Quarter: 2010Q3

REPORT INFORMATION
  Report Type: 
  Country: None (occurrence: None)
  Receive Date: 20100713
  Receipt Date: 20100629
  Transmission Date: 20110219
  Serious: Yes (Hospitalization)
  Sender: FDA-Public Use
  Company Number: CN-MYLANLABS-2010S1011567

PATIENT
  Age: 23 Year
  Sex: Male

DRUGS (22)
  1. INDOMETHACIN SODIUM [Suspect]
     Indication: HEADACHE
     Dosage: 50 MG/DAY
     Route: 048
  2. INDOMETHACIN SODIUM [Suspect]
     Dosage: 50 MG/DAY
     Route: 048
  3. INDOMETHACIN SODIUM [Suspect]
     Route: 048
  4. INDOMETHACIN SODIUM [Suspect]
     Route: 048
  5. ACECLOFENAC [Suspect]
     Indication: HEADACHE
     Route: 048
  6. ACECLOFENAC [Suspect]
     Route: 048
  7. ACECLOFENAC [Suspect]
     Route: 048
  8. ACECLOFENAC [Suspect]
     Route: 048
  9. CELECOXIB [Suspect]
     Indication: ANALGESIC THERAPY
     Route: 048
  10. CARBAMAZEPINE [Concomitant]
     Route: 065
  11. ACYCLOVIR [Concomitant]
     Route: 065
  12. MANNITOL [Concomitant]
     Route: 065
  13. DEXAMETHASONE ACETATE [Concomitant]
     Route: 065
  14. ISONIAZID [Concomitant]
     Route: 042
  15. RIFAMPICIN [Concomitant]
     Route: 042
  16. PYRAZINAMIDE [Concomitant]
     Route: 048
  17. ETHAMBUTOL HYDROCHLORIDE [Concomitant]
     Route: 048
  18. DEXAMETHASONE ACETATE [Concomitant]
     Dosage: TAPERED AT A RATE OF 5MG PER 10 DAYS
     Route: 042
  19. MANNITOL [Concomitant]
     Indication: INTRACRANIAL PRESSURE INCREASED
     Route: 042
  20. GLYCEOL                            /00744501/ [Concomitant]
     Indication: INTRACRANIAL PRESSURE INCREASED
     Route: 042
  21. THIAMINE [Concomitant]
     Route: 030
  22. VITAMIN B-12 [Concomitant]
     Route: 030

REACTIONS (1)
  - PACHYMENINGITIS [None]
